FAERS Safety Report 10867785 (Version 1)
Quarter: 2015Q1

REPORT INFORMATION
  Report Type: Spontaneous
  Country: FR (occurrence: FR)
  Receive Date: 20150225
  Receipt Date: 20150225
  Transmission Date: 20150721
  Serious: Yes (Hospitalization)
  Sender: FDA-Public Use
  Company Number: FR-SA-2015SA021506

PATIENT
  Age: 50 Year
  Sex: Female

DRUGS (10)
  1. NOZINAN [Concomitant]
     Active Substance: LEVOMEPROMAZINE
     Dosage: DROPS
  2. URBANYL [Concomitant]
     Active Substance: CLOBAZAM
     Dates: start: 20150201
  3. TAZOBACTAM/PIPERACILLIN [Concomitant]
     Dates: start: 20150201
  4. FOLIC ACID. [Concomitant]
     Active Substance: FOLIC ACID
     Dosage: 5 MG
  5. LOVENOX [Suspect]
     Active Substance: ENOXAPARIN SODIUM
     Route: 065
     Dates: start: 20150201, end: 20150203
  6. KEPPRA [Suspect]
     Active Substance: LEVETIRACETAM
     Route: 065
     Dates: start: 20150201
  7. AMIKACIN [Concomitant]
     Active Substance: AMIKACIN
     Dates: start: 20150201
  8. DIPRIVAN [Concomitant]
     Active Substance: PROPOFOL
     Dosage: DOSE: 100 MG/HOUR
     Route: 042
     Dates: start: 20150201
  9. ULTIVA [Concomitant]
     Active Substance: REMIFENTANIL HYDROCHLORIDE
     Dosage: DOSE: 0.1 MICROGRAM/KG/MINUTE
     Route: 042
     Dates: start: 20150201
  10. ALEPSAL [Concomitant]
     Active Substance: CAFFEINE\PHENOBARBITAL
     Dosage: 100 MG

REACTIONS (4)
  - Hepatocellular injury [Recovering/Resolving]
  - Cholestasis [Recovering/Resolving]
  - Thrombocytopenia [Recovering/Resolving]
  - Condition aggravated [Unknown]

NARRATIVE: CASE EVENT DATE: 20150201
